FAERS Safety Report 6654352-2 (Version None)
Quarter: 2010Q1

REPORT INFORMATION
  Report Type: 
  Country: None (occurrence: None)
  Receive Date: 20100326
  Receipt Date: 20100315
  Transmission Date: 20100710
  Serious: Yes (Death, Other)
  Sender: FDA-Public Use
  Company Number: JP-PFIZER INC-2010030793

PATIENT
  Age: 63 Year
  Sex: Male

DRUGS (7)
  1. HALCION [Suspect]
     Dosage: 0.125 MG, DAILY
     Route: 048
     Dates: start: 20080301, end: 20100303
  2. NORVASC [Concomitant]
     Route: 048
  3. DEPAS [Concomitant]
  4. MUCOSTA [Concomitant]
  5. EPADEL [Concomitant]
  6. LOXONIN [Concomitant]
  7. OMEPRAZOLE [Concomitant]

REACTIONS (3)
  - DEATH [None]
  - HALLUCINATION [None]
  - WITHDRAWAL SYNDROME [None]
